FAERS Safety Report 18678641 (Version 2)
Quarter: 2022Q3

REPORT INFORMATION
  Report Type: Report from Study
  Country: CL (occurrence: None)
  Receive Date: 20201230
  Receipt Date: 20220719
  Transmission Date: 20221026
  Serious: Yes (Hospitalization)
  Sender: FDA-Public Use
  Company Number: CL-MERCK HEALTHCARE KGAA-9200554

PATIENT
  Age: 39 Year
  Sex: Male

DRUGS (1)
  1. REBIF [Suspect]
     Active Substance: INTERFERON BETA-1A
     Indication: Multiple sclerosis
     Route: 058
     Dates: start: 20200807, end: 20201216

REACTIONS (4)
  - Injection site infection [Recovered/Resolved]
  - Injection site necrosis [Recovered/Resolved]
  - Injection site pain [Not Recovered/Not Resolved]
  - Injection site scab [Not Recovered/Not Resolved]

NARRATIVE: CASE EVENT DATE: 20200101
